FAERS Safety Report 20052278 (Version 2)
Quarter: 2021Q4

REPORT INFORMATION
  Report Type: Spontaneous
  Country: US (occurrence: US)
  Receive Date: 20211110
  Receipt Date: 20211215
  Transmission Date: 20220303
  Serious: No
  Sender: FDA-Public Use
  Company Number: US-PURACAP-US-2021EPCSPO01157

PATIENT
  Age: 46 Year
  Sex: Female
  Weight: 185 kg

DRUGS (7)
  1. ERGOCALCIFEROL [Suspect]
     Active Substance: ERGOCALCIFEROL
     Indication: Vitamin D deficiency
     Route: 048
     Dates: start: 20211014, end: 20211014
  2. SERTRALINE [Concomitant]
     Active Substance: SERTRALINE HYDROCHLORIDE
     Indication: Product use in unapproved indication
     Route: 065
  3. PRILOSEC [Concomitant]
     Active Substance: OMEPRAZOLE MAGNESIUM
     Indication: Product use in unapproved indication
     Route: 065
  4. TOPIRAMATE [Concomitant]
     Active Substance: TOPIRAMATE
     Indication: Product use in unapproved indication
     Route: 065
  5. AMITRIPTYLINE [Concomitant]
     Active Substance: AMITRIPTYLINE
     Indication: Product use in unapproved indication
     Route: 065
  6. ARIPIPRAZOLE [Concomitant]
     Active Substance: ARIPIPRAZOLE
     Indication: Product use in unapproved indication
     Route: 065
  7. AJOVY [Concomitant]
     Active Substance: FREMANEZUMAB-VFRM
     Indication: Product use in unapproved indication
     Route: 065

REACTIONS (3)
  - Erythema [Recovered/Resolved]
  - Drug hypersensitivity [Recovered/Resolved]
  - Pruritus [Recovered/Resolved]

NARRATIVE: CASE EVENT DATE: 20211014
